FAERS Safety Report 22119642 (Version 2)
Quarter: 2023Q1

REPORT INFORMATION
  Report Type: Report from Study
  Country: AR (occurrence: AR)
  Receive Date: 20230321
  Receipt Date: 20230324
  Transmission Date: 20230418
  Serious: Yes (Hospitalization)
  Sender: FDA-Public Use
  Company Number: AR-002147023-NVSC2022AR215027

PATIENT
  Age: 44 Year
  Sex: Female

DRUGS (2)
  1. KISQALI [Suspect]
     Active Substance: RIBOCICLIB
     Indication: Breast cancer metastatic
     Dosage: 600 MG, QD
     Route: 048
     Dates: start: 20220121
  2. KISQALI [Suspect]
     Active Substance: RIBOCICLIB
     Dosage: 400 MG, QD
     Route: 048
     Dates: start: 20220121

REACTIONS (13)
  - Pain [Unknown]
  - Neck pain [Unknown]
  - Full blood count decreased [Unknown]
  - Laboratory test abnormal [Unknown]
  - Muscle contracture [Unknown]
  - Gait disturbance [Unknown]
  - Decreased immune responsiveness [Unknown]
  - Weight decreased [Unknown]
  - Nervousness [Unknown]
  - Crying [Unknown]
  - Pain in extremity [Unknown]
  - Decreased appetite [Unknown]
  - Influenza [Unknown]

NARRATIVE: CASE EVENT DATE: 20221027
